FAERS Safety Report 9034134 (Version 1)
Quarter: 2013Q1

REPORT INFORMATION
  Report Type: Spontaneous
  Country: US (occurrence: None)
  Receive Date: 20130116
  Receipt Date: 20130116
  Transmission Date: 20140127
  Serious: Yes (Other)
  Sender: FDA-Public Use
  Company Number: None

PATIENT
  Age: 4 Year
  Sex: Female
  Weight: 16.78 kg

DRUGS (1)
  1. CDP-OSELTAMIVAR [Suspect]
     Route: 048
     Dates: start: 20130114, end: 20130115

REACTIONS (3)
  - Nightmare [None]
  - Hallucination [None]
  - Abnormal behaviour [None]
